FAERS Safety Report 23390366 (Version 3)
Quarter: 2024Q1

REPORT INFORMATION
  Report Type: Spontaneous
  Country: NL (occurrence: NL)
  Receive Date: 20240111
  Receipt Date: 20240213
  Transmission Date: 20240410
  Serious: Yes (Other)
  Sender: FDA-Public Use
  Company Number: NL-MLMSERVICE-20231227-4739851-1

PATIENT
  Age: 8 Day
  Sex: Male
  Weight: 3.8 kg

DRUGS (1)
  1. ACETAMINOPHEN [Suspect]
     Active Substance: ACETAMINOPHEN
     Indication: Bronchiolitis
     Dosage: 350 MILLIGRAM TOTAL (OVERDOSE WAS 10 TIMES THE INTENDED AMOUNT (BASED ON AN ACTUAL WEIGHT OF 3.8 KG
     Route: 042

REACTIONS (4)
  - Analgesic drug level increased [Recovered/Resolved]
  - Toxicity to various agents [Recovered/Resolved]
  - Accidental overdose [Recovered/Resolved]
  - Medication error [Unknown]
